FAERS Safety Report 13359460 (Version 1)
Quarter: 2017Q1

REPORT INFORMATION
  Report Type: Spontaneous
  Country: US (occurrence: US)
  Receive Date: 20170321
  Receipt Date: 20170321
  Transmission Date: 20170429
  Serious: Yes (Disabling, Other)
  Sender: FDA-Public Use
  Company Number: None

PATIENT
  Age: 73 Year
  Sex: Female
  Weight: 56.7 kg

DRUGS (3)
  1. ORBIT GUM SPLENDA OF MANY [Concomitant]
  2. ICE TEA WITH PEACH [Concomitant]
  3. HYDROCHLOROTHIAZIDE. [Suspect]
     Active Substance: HYDROCHLOROTHIAZIDE

REACTIONS (3)
  - Pituitary tumour [None]
  - Dizziness [None]
  - Vertigo [None]

NARRATIVE: CASE EVENT DATE: 20140417
